FAERS Safety Report 21404272 (Version 1)
Quarter: 2022Q4

REPORT INFORMATION
  Report Type: Spontaneous
  Country: US (occurrence: US)
  Receive Date: 20221003
  Receipt Date: 20221003
  Transmission Date: 20230113
  Serious: No
  Sender: FDA-Public Use
  Company Number: US-SA-SAC20220930001746

PATIENT
  Age: 63 Year
  Sex: Female

DRUGS (23)
  1. AUBAGIO [Suspect]
     Active Substance: TERIFLUNOMIDE
     Indication: Multiple sclerosis
     Dosage: 14 MG, QD
     Route: 048
     Dates: start: 20220415
  2. ERYTHROMYCIN [Suspect]
     Active Substance: ERYTHROMYCIN
  3. MAXALT [Concomitant]
     Active Substance: RIZATRIPTAN BENZOATE
  4. CALCIUM CARBONATE [Concomitant]
     Active Substance: CALCIUM CARBONATE
  5. LOPERAMIDE [Concomitant]
     Active Substance: LOPERAMIDE
  6. IRON [Concomitant]
     Active Substance: IRON
  7. MELATONIN [Concomitant]
     Active Substance: MELATONIN
  8. PROMETHAZINE [Concomitant]
     Active Substance: PROMETHAZINE HYDROCHLORIDE
  9. CYCLOBENZAPRINE [Concomitant]
     Active Substance: CYCLOBENZAPRINE
  10. DULCOLAX BALANCE [Concomitant]
     Active Substance: POLYETHYLENE GLYCOL 3350
  11. HYDROXYZINE [Concomitant]
     Active Substance: HYDROXYZINE HYDROCHLORIDE
  12. ACYCLOVIR ABBOTT VIAL [Concomitant]
  13. OXYBUTYNIN [Concomitant]
     Active Substance: OXYBUTYNIN
  14. MODAFINIL [Concomitant]
     Active Substance: MODAFINIL
  15. DIPHENOXYLATE [Concomitant]
     Active Substance: DIPHENOXYLATE
  16. ATROPINE [Concomitant]
     Active Substance: ATROPINE
  17. PANTOPRAZOLE [Concomitant]
     Active Substance: PANTOPRAZOLE
  18. TEGRETOL [Concomitant]
     Active Substance: CARBAMAZEPINE
  19. GABAPENTIN [Concomitant]
     Active Substance: GABAPENTIN
  20. DIVALPROEX SODIUM [Concomitant]
     Active Substance: DIVALPROEX SODIUM
  21. FLAXSEED [Concomitant]
     Active Substance: FLAX SEED
  22. VITAMIN C [Concomitant]
     Active Substance: ASCORBIC ACID
  23. CYANOCOBALAMIN [Concomitant]
     Active Substance: CYANOCOBALAMIN

REACTIONS (3)
  - Back pain [Unknown]
  - Cystitis [Unknown]
  - Drug ineffective [Unknown]

NARRATIVE: CASE EVENT DATE: 20220922
